FAERS Safety Report 6152024-4 (Version None)
Quarter: 2009Q2

REPORT INFORMATION
  Report Type: 
  Country: None (occurrence: None)
  Receive Date: 20090410
  Receipt Date: 20090331
  Transmission Date: 20091009
  Serious: Yes (Other)
  Sender: FDA-Public Use
  Company Number: PHEH2009US03227

PATIENT
  Age: 70 Year
  Sex: Female

DRUGS (1)
  1. TEKTURNA [Suspect]
     Dosage: 150 MG (CUT THE 300 MG TABLET INTO HALF)
     Route: 048
     Dates: start: 20081201

REACTIONS (2)
  - GENERALISED OEDEMA [None]
  - HYPERSENSITIVITY [None]
